FAERS Safety Report 7735283-3 (Version None)
Quarter: 2011Q3

REPORT INFORMATION
  Report Type: 
  Country: None (occurrence: None)
  Receive Date: 20110907
  Receipt Date: 20110830
  Transmission Date: 20111222
  Serious: Yes (Hospitalization)
  Sender: FDA-Public Use
  Company Number: US-PURDUE-USA-2010-0057062

PATIENT
  Sex: Female

DRUGS (7)
  1. OXYCONTIN [Suspect]
     Dosage: 160 MG, BID
     Route: 048
  2. ANTI ITCH [Concomitant]
     Indication: RASH
  3. CALADRYL                           /00138901/ [Concomitant]
     Indication: RASH
  4. OXYCONTIN [Suspect]
     Dosage: 20 MG, UNK
     Route: 048
     Dates: start: 20100801
  5. MOTRIN [Concomitant]
     Indication: BACK PAIN
  6. ZANAFLEX [Concomitant]
     Indication: BACK PAIN
  7. OXYCONTIN [Suspect]
     Indication: BACK PAIN
     Dosage: 40 MG, UNK
     Dates: start: 20100801

REACTIONS (5)
  - RASH PUSTULAR [None]
  - DRUG INEFFECTIVE [None]
  - DRUG EFFECT DECREASED [None]
  - DRUG EFFECT DELAYED [None]
  - ACNE CYSTIC [None]
